FAERS Safety Report 13065372 (Version 3)
Quarter: 2017Q1

REPORT INFORMATION
  Report Type: Report from Study
  Country: AU (occurrence: AU)
  Receive Date: 20161227
  Receipt Date: 20170328
  Transmission Date: 20170428
  Serious: Yes (Hospitalization, Disabling, Other)
  Sender: FDA-Public Use
  Company Number: AU-TOLMAR, INC.-2016AU013868

PATIENT
  Age: 78 Year
  Sex: Male

DRUGS (5)
  1. METHOTREXATE. [Concomitant]
     Active Substance: METHOTREXATE
  2. PREDNISOLONE                       /00016204/ [Concomitant]
     Active Substance: PREDNISOLONE
  3. CELEBREX [Concomitant]
     Active Substance: CELECOXIB
  4. PREDNISONE. [Concomitant]
     Active Substance: PREDNISONE
  5. ELIGARD [Suspect]
     Active Substance: LEUPROLIDE ACETATE
     Indication: PROSTATE CANCER
     Dosage: 22.5 MG, Q3MONTHS
     Route: 065
     Dates: start: 201607, end: 20161011

REACTIONS (7)
  - Gait disturbance [Not Recovered/Not Resolved]
  - Balance disorder [Not Recovered/Not Resolved]
  - Memory impairment [Not Recovered/Not Resolved]
  - Testicular neoplasm [Not Recovered/Not Resolved]
  - Skin cancer [Not Recovered/Not Resolved]
  - Mobility decreased [Not Recovered/Not Resolved]
  - Leukaemia [Not Recovered/Not Resolved]

NARRATIVE: CASE EVENT DATE: 201612
